FAERS Safety Report 9661956 (Version 2)
Quarter: 2013Q4

REPORT INFORMATION
  Report Type: Spontaneous
  Country: US (occurrence: US)
  Receive Date: 20131031
  Receipt Date: 20131031
  Transmission Date: 20140711
  Serious: Yes (Hospitalization, Other)
  Sender: FDA-Public Use
  Company Number: US-NAPPMUNDI-USA-2011-0066018

PATIENT
  Age: 29 Year
  Sex: Male

DRUGS (2)
  1. OXYCONTIN (NDA 22-272) [Suspect]
     Indication: DRUG ABUSE
     Dosage: UNK UNK, SEE TEXT
     Route: 048
     Dates: start: 20110222, end: 20110222
  2. ALPRAZOLAM [Suspect]
     Indication: DRUG ABUSE
     Dosage: 2 MG, UNK
     Dates: start: 20110222, end: 20110222

REACTIONS (1)
  - Drug abuse [Recovered/Resolved]
